FAERS Safety Report 8995186 (Version 1)
Quarter: 2013Q1

REPORT INFORMATION
  Report Type: Spontaneous
  Country: US (occurrence: US)
  Receive Date: 20130102
  Receipt Date: 20130102
  Transmission Date: 20140127
  Serious: No
  Sender: FDA-Public Use
  Company Number: US-AMGEN-USASP2012067260

PATIENT
  Age: 34 Year
  Sex: Male

DRUGS (2)
  1. ENBREL [Suspect]
     Indication: PSORIASIS
     Dosage: 50 MG, 2 TIMES/WK
     Dates: start: 20050101
  2. HUMIRA [Concomitant]
     Dosage: UNK

REACTIONS (8)
  - Pain in extremity [Not Recovered/Not Resolved]
  - Musculoskeletal pain [Not Recovered/Not Resolved]
  - Arthralgia [Not Recovered/Not Resolved]
  - Blood cholesterol increased [Recovered/Resolved]
  - Blister [Recovered/Resolved]
  - Pruritus [Recovered/Resolved]
  - Drug hypersensitivity [Recovered/Resolved]
  - Psoriasis [Not Recovered/Not Resolved]
